FAERS Safety Report 12759760 (Version 1)
Quarter: 2016Q3

REPORT INFORMATION
  Report Type: Spontaneous
  Country: CH (occurrence: CH)
  Receive Date: 20160919
  Receipt Date: 20160919
  Transmission Date: 20161109
  Serious: Yes (Hospitalization)
  Sender: FDA-Public Use
  Company Number: CH-SA-2016SA167789

PATIENT
  Age: 74 Year
  Sex: Female

DRUGS (9)
  1. CO-DAFALGAN [Suspect]
     Active Substance: ACETAMINOPHEN\CODEINE PHOSPHATE
     Route: 065
     Dates: end: 20160617
  2. MODURETIC 5-50 [Suspect]
     Active Substance: AMILORIDE HYDROCHLORIDE\HYDROCHLOROTHIAZIDE
     Route: 065
     Dates: end: 20160617
  3. DUSPATALIN [Suspect]
     Active Substance: MEBEVERINE HYDROCHLORIDE
     Route: 065
     Dates: end: 20160617
  4. AVALOX [Suspect]
     Active Substance: MOXIFLOXACIN HYDROCHLORIDE
     Route: 065
     Dates: start: 20160511, end: 20160518
  5. VOLTAREN [Suspect]
     Active Substance: DICLOFENAC SODIUM
     Route: 065
     Dates: end: 20160617
  6. MEFENAMIC ACID. [Suspect]
     Active Substance: MEFENAMIC ACID
     Route: 065
     Dates: start: 201510, end: 201605
  7. STILNOX [Suspect]
     Active Substance: ZOLPIDEM TARTRATE
     Route: 048
     Dates: start: 2012
  8. OMEPRAZOLE. [Suspect]
     Active Substance: OMEPRAZOLE
     Route: 065
     Dates: end: 20160617
  9. SIRDALUD [Suspect]
     Active Substance: TIZANIDINE
     Route: 065
     Dates: end: 20160617

REACTIONS (1)
  - Drug-induced liver injury [Recovered/Resolved]

NARRATIVE: CASE EVENT DATE: 20160524
